FAERS Safety Report 8131915-9 (Version None)
Quarter: 2012Q1

REPORT INFORMATION
  Report Type: 
  Country: None (occurrence: None)
  Receive Date: 20120213
  Receipt Date: 20120207
  Transmission Date: 20120608
  Serious: Yes (Hospitalization)
  Sender: FDA-Public Use
  Company Number: US-PFIZER INC-2012034503

PATIENT
  Sex: Male

DRUGS (1)
  1. REVATIO [Suspect]
     Indication: LEUKAEMIA
     Dosage: 200 MG, 2X/DAY
     Dates: start: 20080101

REACTIONS (1)
  - INFECTION [None]
